FAERS Safety Report 24718545 (Version 1)
Quarter: 2024Q4

REPORT INFORMATION
  Report Type: Spontaneous
  Country: US (occurrence: None)
  Receive Date: 20241210
  Receipt Date: 20241210
  Transmission Date: 20250114
  Serious: Yes (Death)
  Sender: Public
  Company Number: None

PATIENT
  Age: 79 Year
  Sex: Male
  Weight: 98 kg

DRUGS (3)
  1. TOCILIZUMAB [Suspect]
     Active Substance: TOCILIZUMAB
     Indication: COVID-19
     Dosage: 800.00 MG : ONCE INTRAVENOUS?
     Route: 042
     Dates: start: 20220107, end: 20220107
  2. REMDESIVIR [Suspect]
     Active Substance: REMDESIVIR
  3. DEXAMETHASONE [Suspect]
     Active Substance: DEXAMETHASONE

REACTIONS (2)
  - Terminal state [None]
  - Respiratory disorder [None]

NARRATIVE: CASE EVENT DATE: 20220109
